FAERS Safety Report 8982187 (Version 1)
Quarter: 2012Q4

REPORT INFORMATION
  Report Type: 
  Country: US (occurrence: US)
  Receive Date: 20121212
  Receipt Date: 20121212
  Transmission Date: 20130627
  Serious: Yes (Death, Hospitalization, Other)
  Sender: FDA-Public Use
  Company Number: US-ASTELLAS-1095444

PATIENT
  Sex: Male

DRUGS (3)
  1. AVASTIN [Suspect]
     Indication: RENAL CANCER
     Route: 065
  2. TARCEVA [Suspect]
     Indication: RENAL CANCER
     Route: 065
  3. MEGACE [Concomitant]

REACTIONS (9)
  - Death [Fatal]
  - Pain [Unknown]
  - Metastases to liver [Unknown]
  - Pleural effusion [Unknown]
  - Metastasis [Unknown]
  - Aortic aneurysm [Unknown]
  - Diverticulitis [Unknown]
  - Oesophageal disorder [Unknown]
  - Asthenia [Unknown]
